FAERS Safety Report 6088728-1 (Version None)
Quarter: 2009Q1

REPORT INFORMATION
  Report Type: 
  Country: None (occurrence: None)
  Receive Date: 20090224
  Receipt Date: 20090216
  Transmission Date: 20090719
  Serious: Yes (Death, Hospitalization)
  Sender: FDA-Public Use
  Company Number: JP-KINGPHARMUSA00001-K200900147

PATIENT
  Age: 72 Year
  Sex: Female

DRUGS (3)
  1. TAPAZOLE [Suspect]
     Indication: BASEDOW'S DISEASE
     Dosage: UNK
     Dates: end: 20040601
  2. METHYLPREDNISOLONE 4MG TAB [Suspect]
     Dosage: 0.5 G, QD
     Dates: start: 20070101, end: 20070101
  3. PREDNISOLONE [Suspect]
     Dosage: 20 MG, QD, THEN TAPERED
     Dates: start: 20070101, end: 20070101

REACTIONS (23)
  - ANAEMIA [None]
  - ANOREXIA [None]
  - ASCITES [None]
  - AZOTAEMIA [None]
  - BACK PAIN [None]
  - BENIGN PANCREATIC NEOPLASM [None]
  - CARDIAC FAILURE [None]
  - DYSURIA [None]
  - GLOMERULONEPHRITIS [None]
  - GLOMERULONEPHRITIS MEMBRANOUS [None]
  - HYPERTHYROIDISM [None]
  - MULTI-ORGAN FAILURE [None]
  - MUSCULOSKELETAL CHEST PAIN [None]
  - NAUSEA [None]
  - NEPHROANGIOSCLEROSIS [None]
  - PANCREATIC CYST [None]
  - PANCREATIC NECROSIS [None]
  - PANCREATITIS ACUTE [None]
  - PLATELET COUNT DECREASED [None]
  - PROTEINURIA [None]
  - PULMONARY CONGESTION [None]
  - RENAL FAILURE [None]
  - RENAL VASCULITIS [None]
